FAERS Safety Report 16409808 (Version 1)
Quarter: 2019Q2

REPORT INFORMATION
  Report Type: Spontaneous
  Country: US (occurrence: US)
  Receive Date: 20190610
  Receipt Date: 20190610
  Transmission Date: 20190711
  Serious: No
  Sender: FDA-Public Use
  Company Number: US-PFIZER INC-2019238932

PATIENT
  Age: 65 Year
  Sex: Female
  Weight: 45.81 kg

DRUGS (4)
  1. ESTRING [Suspect]
     Active Substance: ESTRADIOL
     Indication: URINARY TRACT INFECTION
     Dosage: UNK
  2. PREDNISONE. [Concomitant]
     Active Substance: PREDNISONE
     Dosage: UNK (ONE 5 MG AND ONE 1 MG )
  3. PREDNISONE. [Concomitant]
     Active Substance: PREDNISONE
     Dosage: 6 MG, UNK ( ONE 5 MG AND ONE 1 MG )
  4. ESTRING [Suspect]
     Active Substance: ESTRADIOL
     Indication: BLOOD OESTROGEN

REACTIONS (2)
  - Drug effective for unapproved indication [Unknown]
  - Off label use [Unknown]
